FAERS Safety Report 9054295 (Version 2)
Quarter: 2013Q2

REPORT INFORMATION
  Report Type: Spontaneous
  Country: GB (occurrence: GB)
  Receive Date: 20130208
  Receipt Date: 20130507
  Transmission Date: 20140414
  Serious: Yes (Other)
  Sender: FDA-Public Use
  Company Number: GB-PFIZER INC-2013046518

PATIENT
  Age: 55 Year
  Sex: Female

DRUGS (1)
  1. ZITHROMAX [Suspect]

REACTIONS (1)
  - Uveitis [Unknown]
